FAERS Safety Report 5456591-5 (Version None)
Quarter: 2007Q3

REPORT INFORMATION
  Report Type: 
  Country: None (occurrence: None)
  Receive Date: 20070918
  Receipt Date: 20070912
  Transmission Date: 20080115
  Serious: Yes (Hospitalization, Other)
  Sender: FDA-Public Use
  Company Number: FRWYE214518NOV04

PATIENT
  Sex: Male

DRUGS (2)
  1. SIROLIMUS [Suspect]
     Indication: PROPHYLAXIS AGAINST TRANSPLANT REJECTION
     Route: 048
     Dates: start: 20041024, end: 20041123
  2. ZENEPAX [Concomitant]
     Dosage: UNKNOWN

REACTIONS (1)
  - KIDNEY TRANSPLANT REJECTION [None]
